FAERS Safety Report 16031940 (Version 1)
Quarter: 2019Q1

REPORT INFORMATION
  Report Type: Spontaneous
  Country: IT (occurrence: IT)
  Receive Date: 20190304
  Receipt Date: 20190304
  Transmission Date: 20190418
  Serious: Yes (Hospitalization)
  Sender: FDA-Public Use
  Company Number: IT-MYLANLABS-2019M1018648

PATIENT
  Age: 70 Year
  Sex: Male
  Weight: 85 kg

DRUGS (3)
  1. FIRMAGON [Concomitant]
     Active Substance: DEGARELIX ACETATE
     Indication: PROSTATE CANCER
     Dosage: 80 MILLIGRAM
     Route: 058
     Dates: start: 20160115
  2. PREDNISONE. [Suspect]
     Active Substance: PREDNISONE
     Indication: PROSTATE CANCER
     Dosage: 10 MILLIGRAM, QD
     Route: 048
     Dates: start: 20180803
  3. ABIRATERONE. [Suspect]
     Active Substance: ABIRATERONE ACETATE
     Indication: PROSTATE CANCER
     Dosage: 1000 MILLIGRAM, QD
     Dates: start: 20180703

REACTIONS (1)
  - Acute abdomen [Recovered/Resolved]

NARRATIVE: CASE EVENT DATE: 20180809
